FAERS Safety Report 10037951 (Version 1)
Quarter: 2014Q1

REPORT INFORMATION
  Report Type: Spontaneous
  Country: US (occurrence: None)
  Receive Date: 20140306
  Receipt Date: 20140306
  Transmission Date: 20141002
  Serious: Yes (Hospitalization)
  Sender: FDA-Public Use
  Company Number: 163-21880-13082663

PATIENT
  Age: 55 Year
  Sex: Female
  Weight: 74.39 kg

DRUGS (16)
  1. REVLIMID (LENALIDOMIDE) (25 MILLIGRAM, CAPSULES) [Suspect]
     Indication: PLASMA CELL MYELOMA
     Dosage: 21 IN 21 D
     Route: 048
     Dates: start: 20130722, end: 20130810
  2. ASPIRIN (UNKNOWN) [Concomitant]
  3. XARELTO (RIVAROXABAN) [Concomitant]
  4. KCL (POTASSIUM CHLORIDE) [Concomitant]
  5. HYDROXYCHLOROQUINE (HYDROCHLOROQUINE) [Concomitant]
  6. DEXAMETHASONE (DEXAMETHASONE) [Concomitant]
  7. FISH OIL (FISH OIL) [Concomitant]
  8. METOPROLOL (METOPROLOL) [Concomitant]
  9. VIT C (ASCORBIC ACID) [Concomitant]
  10. METFORMIN (METFORMIN) [Concomitant]
  11. VIT E (UNKNOWN) [Concomitant]
  12. MYCOPHENOLATE (MYCOPHENOLATE MOFETIL) (500 MILLIGRAM, UNKNOWN) [Concomitant]
  13. CALCIUM + VIT D (CALCIUM + VIT D) [Concomitant]
  14. CYCLOSPORINE (CICLOSPORIN) [Concomitant]
  15. FUROSEMIDE (FUROSEMIDE) [Concomitant]
  16. COLCHICINE (COLCHICINE) [Concomitant]

REACTIONS (1)
  - Thrombosis [None]
